FAERS Safety Report 10970448 (Version 1)
Quarter: 2015Q1

REPORT INFORMATION
  Report Type: Report from Study
  Country: DE (occurrence: DE)
  Receive Date: 20150331
  Receipt Date: 20150331
  Transmission Date: 20150721
  Serious: Yes (Death, Other)
  Sender: FDA-Public Use
  Company Number: DE-GILEAD-2015-0146057

PATIENT
  Age: 59 Year
  Sex: Male
  Weight: 86 kg

DRUGS (6)
  1. LEDIPASVIR/SOFOSBUVIR [Suspect]
     Active Substance: LEDIPASVIR\SOFOSBUVIR
     Indication: CHRONIC HEPATITIS C
     Dosage: UNK UNK, QD
     Route: 048
     Dates: start: 20150215, end: 20150327
  2. LACTULOSE. [Suspect]
     Active Substance: LACTULOSE
     Indication: HEPATIC ENCEPHALOPATHY
     Dosage: 10 ML, TID
     Route: 048
     Dates: start: 20130513, end: 20150327
  3. BISOPROLOL RATIOPHARM [Concomitant]
     Active Substance: BISOPROLOL
     Dosage: 5 MG, UNK
  4. ALDACTONE [Suspect]
     Active Substance: SPIRONOLACTONE
     Indication: ASCITES
     Dosage: 25 MG, QD
     Route: 048
     Dates: start: 20130513, end: 20150327
  5. TORASEMIDE [Suspect]
     Active Substance: TORSEMIDE
     Indication: ASCITES
     Dosage: 5 MG, BID
     Route: 048
     Dates: start: 20130513, end: 20150327
  6. METHADONE [Suspect]
     Active Substance: METHADONE HYDROCHLORIDE
     Indication: POLYSUBSTANCE DEPENDENCE
     Dosage: 100 MG, QD
     Route: 048
     Dates: start: 20111129, end: 20150327

REACTIONS (1)
  - Death [Fatal]

NARRATIVE: CASE EVENT DATE: 20150327
